FAERS Safety Report 24180659 (Version 2)
Quarter: 2024Q3

REPORT INFORMATION
  Report Type: Report from Study
  Country: US (occurrence: US)
  Receive Date: 20240806
  Receipt Date: 20240811
  Transmission Date: 20241017
  Serious: No
  Sender: ABBVIE
  Company Number: US-ABBVIE-5865941

PATIENT
  Age: 70 Year
  Sex: Male

DRUGS (1)
  1. CREON [Suspect]
     Active Substance: PANCRELIPASE AMYLASE\PANCRELIPASE LIPASE\PANCRELIPASE PROTEASE
     Indication: Pancreatic failure
     Route: 048
     Dates: start: 202406, end: 202406

REACTIONS (3)
  - Dyspepsia [Unknown]
  - Abdominal distension [Unknown]
  - Vomiting [Unknown]

NARRATIVE: CASE EVENT DATE: 20240801
